FAERS Safety Report 8771910 (Version 2)
Quarter: 2012Q4

REPORT INFORMATION
  Report Type: 
  Country: AR (occurrence: AR)
  Receive Date: 20120905
  Receipt Date: 20120911
  Transmission Date: 20130627
  Serious: Yes (Other)
  Sender: FDA-Public Use
  Company Number: PHHY2012AR076397

PATIENT
  Sex: Female

DRUGS (1)
  1. ONBREZ [Suspect]
     Indication: LUNG DISORDER
     Dosage: Each every other day
     Dates: start: 20120727

REACTIONS (2)
  - Arrhythmia [Recovered/Resolved]
  - Total lung capacity decreased [Unknown]
